FAERS Safety Report 6973519-7 (Version None)
Quarter: 2010Q3

REPORT INFORMATION
  Report Type: 
  Country: None (occurrence: None)
  Receive Date: 20100907
  Receipt Date: 20100831
  Transmission Date: 20110219
  Serious: Yes (Hospitalization)
  Sender: FDA-Public Use
  Company Number: CIP10002072

PATIENT
  Sex: Female

DRUGS (4)
  1. RISEDRONATE SODIUM [Suspect]
     Indication: OSTEOPOROSIS
     Dosage: 17.5 MG, ONCE WEEKLY, ORAL
     Route: 048
     Dates: start: 20090304, end: 20100712
  2. EPINASTINE HYDROCHLORIDE (EPINASTINE HYDROCHLORIDE) [Concomitant]
  3. DEPAS (ETIZOLAM) [Concomitant]
  4. ATELEC (CILNIDIPINE) [Concomitant]

REACTIONS (2)
  - ORAL PUSTULE [None]
  - TOOTHACHE [None]
